FAERS Safety Report 5228161-5 (Version None)
Quarter: 2007Q1

REPORT INFORMATION
  Report Type: 
  Country: None (occurrence: None)
  Receive Date: 20070130
  Receipt Date: 20070117
  Transmission Date: 20070707
  Serious: Yes (Other)
  Sender: FDA-Public Use
  Company Number: 2007SP000897

PATIENT
  Age: 70 Year
  Sex: Male
  Weight: 108.8633 kg

DRUGS (3)
  1. EPTIFIBATIDE (S-P) [Suspect]
     Indication: PERCUTANEOUS CORONARY INTERVENTION
     Dosage: IV
     Route: 042
     Dates: start: 20070117, end: 20070117
  2. HEPARIN [Suspect]
     Indication: PERCUTANEOUS CORONARY INTERVENTION
     Dosage: SEE IMAGE
     Route: 042
     Dates: start: 20070117, end: 20070117
  3. HEPARIN [Suspect]
     Indication: PERCUTANEOUS CORONARY INTERVENTION
     Dosage: SEE IMAGE
     Route: 042
     Dates: start: 20070117, end: 20070117

REACTIONS (2)
  - EPISTAXIS [None]
  - HAEMOPTYSIS [None]
